FAERS Safety Report 19796848 (Version 13)
Quarter: 2022Q3

REPORT INFORMATION
  Report Type: Report from Study
  Country: US (occurrence: US)
  Receive Date: 20210907
  Receipt Date: 20220929
  Transmission Date: 20221026
  Serious: Yes (Hospitalization, Other)
  Sender: FDA-Public Use
  Company Number: US-NOVARTISPH-NVSC2021US202369

PATIENT
  Sex: Female

DRUGS (2)
  1. ADAKVEO [Suspect]
     Active Substance: CRIZANLIZUMAB-TMCA
     Indication: Product used for unknown indication
     Dosage: UNK
     Route: 065
  2. TRAMADOL [Suspect]
     Active Substance: TRAMADOL
     Indication: Illness
     Dosage: UNK
     Route: 065

REACTIONS (20)
  - Gastroenteritis viral [Unknown]
  - Sickle cell anaemia with crisis [Recovering/Resolving]
  - Suicidal ideation [Unknown]
  - Depression [Unknown]
  - Pain in extremity [Unknown]
  - Back pain [Recovering/Resolving]
  - Arthralgia [Unknown]
  - Withdrawal syndrome [Unknown]
  - Abdominal pain upper [Unknown]
  - Vitamin B12 decreased [Unknown]
  - Tooth infection [Unknown]
  - Memory impairment [Unknown]
  - Somnolence [Not Recovered/Not Resolved]
  - Illness [Not Recovered/Not Resolved]
  - Neck pain [Unknown]
  - Hyperhidrosis [Unknown]
  - Pyrexia [Recovering/Resolving]
  - Infusion related reaction [Recovered/Resolved]
  - Pain [Not Recovered/Not Resolved]
  - Drug ineffective [Unknown]
